FAERS Safety Report 9520823 (Version 1)
Quarter: 2013Q3

REPORT INFORMATION
  Report Type: Spontaneous
  Country: US (occurrence: US)
  Receive Date: 20130913
  Receipt Date: 20130913
  Transmission Date: 20140515
  Serious: Yes (Other)
  Sender: FDA-Public Use
  Company Number: US-ASTRAZENECA-2013SE67606

PATIENT
  Age: 69 Year
  Sex: Female
  Weight: 72.6 kg

DRUGS (4)
  1. NEXIUM [Suspect]
     Indication: GASTROOESOPHAGEAL REFLUX DISEASE
     Route: 048
     Dates: start: 2001
  2. LISINOPRIL [Suspect]
     Indication: BLOOD PRESSURE ABNORMAL
     Dosage: DAILY
     Route: 048
     Dates: start: 2011
  3. PRAVASTATIN [Concomitant]
     Indication: BLOOD CHOLESTEROL ABNORMAL
     Dosage: DAILY
     Route: 048
     Dates: start: 2011
  4. LEXAPRO [Concomitant]
     Indication: DEPRESSION
     Route: 048
     Dates: start: 2009

REACTIONS (4)
  - Breast cancer female [Unknown]
  - Blood cholesterol increased [Unknown]
  - Hypertension [Unknown]
  - Depression [Unknown]
